FAERS Safety Report 4781147-7 (Version None)
Quarter: 2005Q3

REPORT INFORMATION
  Report Type: 
  Country: None (occurrence: None)
  Receive Date: 20050926
  Receipt Date: 20050912
  Transmission Date: 20060218
  Serious: Yes (Hospitalization)
  Sender: FDA-Public Use
  Company Number: RENA-11517

PATIENT
  Age: 69 Year
  Sex: Male

DRUGS (16)
  1. RENAGEL [Suspect]
     Indication: HYPERPHOSPHATAEMIA
     Dosage: 2.4 G TID PO
     Route: 048
     Dates: start: 20050722
  2. RENAGEL [Suspect]
     Indication: HYPERPHOSPHATAEMIA
     Dates: start: 20050624, end: 20050721
  3. METOPROLOL [Concomitant]
  4. ASPIRIN [Concomitant]
  5. FOLIC ACID [Concomitant]
  6. MULTI-VITAMINS [Concomitant]
  7. MUPIROCIN OINTMENT [Concomitant]
  8. FERROUS SULFATE TAB [Concomitant]
  9. NEORECORMON [Concomitant]
  10. FRUSOMIDE (FUROSEMIDE) [Concomitant]
  11. CALCITRIOL [Concomitant]
  12. NOVORAPID [Concomitant]
  13. INSULIN GLARGINE [Concomitant]
  14. GTN SPRAY [Concomitant]
  15. ATORVASTATIN [Concomitant]
  16. IMDUR [Concomitant]

REACTIONS (2)
  - DIZZINESS [None]
  - LOSS OF CONSCIOUSNESS [None]
